FAERS Safety Report 9249769 (Version 2)
Quarter: 2013Q4

REPORT INFORMATION
  Report Type: Spontaneous
  Country: DE (occurrence: DE)
  Receive Date: 20130423
  Receipt Date: 20131118
  Transmission Date: 20140711
  Serious: Yes (Death, Life-Threatening, Other)
  Sender: FDA-Public Use
  Company Number: DE-PFIZER INC-2013122993

PATIENT
  Sex: Female

DRUGS (9)
  1. VENLAFAXINE HCL [Suspect]
     Dosage: 75 MG, UNK
     Route: 048
     Dates: start: 2010, end: 20121219
  2. VENLAFAXINE HCL [Suspect]
     Dosage: 150 MG, UNK
     Route: 048
     Dates: start: 20121220
  3. BELOC ZOK [Suspect]
     Dosage: 95 MG, UNK
     Route: 048
  4. DOMINAL [Suspect]
     Indication: SLEEP DISORDER
     Dosage: 80 MG, UNK
     Route: 048
     Dates: start: 2010
  5. MELPERONE [Suspect]
     Dosage: 25 MG, UNK
     Route: 048
     Dates: start: 20130101, end: 20130207
  6. MELPERONE [Suspect]
     Dosage: 50 MG, UNK
     Route: 048
     Dates: start: 20130208
  7. RAMIPRIL [Concomitant]
     Dosage: 5 MG, UNK
  8. VIGANTOLETTEN [Concomitant]
     Dosage: 1000 MG, UNK
     Route: 048
  9. SCHWEDENTABLETTEN [Concomitant]
     Dosage: 1500 MG, UNK
     Route: 048
     Dates: start: 20130205

REACTIONS (11)
  - Cardiac arrest [Fatal]
  - Bundle branch block right [Unknown]
  - Bundle branch block left [Unknown]
  - Atrial fibrillation [Unknown]
  - Ventricular fibrillation [Unknown]
  - Malaise [Unknown]
  - Dizziness [Unknown]
  - Asthenia [Unknown]
  - Decreased appetite [Unknown]
  - Depression [Unknown]
  - Hyponatraemia [Unknown]
